FAERS Safety Report 6888479-7 (Version None)
Quarter: 2010Q3

REPORT INFORMATION
  Report Type: 
  Country: None (occurrence: None)
  Receive Date: 20100730
  Receipt Date: 20100719
  Transmission Date: 20110219
  Serious: Yes (Other)
  Sender: FDA-Public Use
  Company Number: PHHY2010US47310

PATIENT
  Sex: Female
  Weight: 79 kg

DRUGS (4)
  1. EXJADE [Suspect]
     Indication: IRON OVERLOAD
     Dosage: 1500 MG, QD
     Route: 048
     Dates: start: 20080201, end: 20080209
  2. EXJADE [Suspect]
     Dosage: 750 MG, QD
     Route: 048
     Dates: start: 20090901, end: 20090929
  3. EXJADE [Suspect]
     Dosage: UNK
     Route: 048
     Dates: start: 20100401
  4. PROCRIT [Concomitant]
     Indication: MYELODYSPLASTIC SYNDROME
     Dosage: 80,000 UNITS
     Route: 058

REACTIONS (2)
  - RASH [None]
  - SURGERY [None]
